APPROVED DRUG PRODUCT: SEREVENT
Active Ingredient: SALMETEROL XINAFOATE
Strength: EQ 0.05MG BASE/INH
Dosage Form/Route: POWDER;INHALATION
Application: N020692 | Product #001
Applicant: GLAXOSMITHKLINE INTELLECTUAL PROPERTY LTD ENGLAND
Approved: Sep 19, 1997 | RLD: Yes | RS: Yes | Type: RX